FAERS Safety Report 14678621 (Version 2)
Quarter: 2021Q3

REPORT INFORMATION
  Report Type: Other
  Country: CO (occurrence: CO)
  Receive Date: 20180326
  Receipt Date: 20210804
  Transmission Date: 20211014
  Serious: Yes (Other)
  Sender: FDA-Public Use
  Company Number: CO-ROCHE-2093805

PATIENT
  Sex: Male
  Weight: 52 kg

DRUGS (9)
  1. XOLAIR [Suspect]
     Active Substance: OMALIZUMAB
     Route: 058
  2. XOLAIR [Suspect]
     Active Substance: OMALIZUMAB
     Route: 058
  3. SYMBICORT [Concomitant]
     Active Substance: BUDESONIDE\FORMOTEROL FUMARATE DIHYDRATE
     Indication: ASTHMA
     Dosage: 2 PUFFS, EVERY 12 HOURS
     Route: 048
  4. XOLAIR [Suspect]
     Active Substance: OMALIZUMAB
     Route: 058
  5. XOLAIR [Suspect]
     Active Substance: OMALIZUMAB
     Route: 058
     Dates: start: 202107
  6. IPRATROPIUM BROMIDE. [Concomitant]
     Active Substance: IPRATROPIUM BROMIDE
     Indication: ASTHMA
     Dosage: 2 PUFFS, EVERY 12 HOURS
     Route: 048
  7. XOLAIR [Suspect]
     Active Substance: OMALIZUMAB
     Dosage: 4 AMPOULES EVERY 15 DAYS
     Route: 058
  8. SALBUTAMOL [Concomitant]
     Active Substance: ALBUTEROL
     Indication: ASTHMA
     Dosage: 4 PUFFS, AS NEEDED
     Route: 048
  9. XOLAIR [Suspect]
     Active Substance: OMALIZUMAB
     Indication: ASTHMA
     Route: 058

REACTIONS (9)
  - Pneumonia [Unknown]
  - Dyspnoea [Unknown]
  - Illness [Unknown]
  - Obstructive airways disorder [Unknown]
  - Coronary artery occlusion [Unknown]
  - Asthma [Unknown]
  - Respiratory tract infection [Unknown]
  - Product administration error [Unknown]
  - Aggression [Unknown]
